FAERS Safety Report 16068418 (Version 1)
Quarter: 2019Q1

REPORT INFORMATION
  Report Type: Spontaneous
  Country: US (occurrence: US)
  Receive Date: 20190313
  Receipt Date: 20190313
  Transmission Date: 20190418
  Serious: Yes (Other)
  Sender: FDA-Public Use
  Company Number: US-BRISTOL-MYERS SQUIBB COMPANY-BMS-2019-021950

PATIENT
  Age: 66 Year
  Sex: Female

DRUGS (2)
  1. WARFARIN SODIUM. [Suspect]
     Active Substance: WARFARIN SODIUM
     Indication: PROPHYLAXIS
     Dosage: 5 MILLIGRAM, 1 DAY (FREQUENCY UNSPECIFED)
     Route: 048
  2. SULFAMETHOXAZOLE AND TRIMETHOPRIM [Interacting]
     Active Substance: SULFAMETHOXAZOLE\TRIMETHOPRIM
     Indication: PYELONEPHRITIS
     Dosage: 1 DOSAGE FORM, BID
     Route: 065

REACTIONS (4)
  - Rectal haemorrhage [Recovered/Resolved]
  - Epistaxis [Unknown]
  - Drug interaction [Recovered/Resolved]
  - International normalised ratio increased [Recovered/Resolved]
